FAERS Safety Report 14897902 (Version 2)
Quarter: 2018Q2

REPORT INFORMATION
  Report Type: Spontaneous
  Country: US (occurrence: US)
  Receive Date: 20180515
  Receipt Date: 20180517
  Transmission Date: 20180711
  Serious: No
  Sender: FDA-Public Use
  Company Number: US-SA-2017SA220113

PATIENT
  Age: 81 Year
  Sex: Female

DRUGS (2)
  1. TOUJEO [Suspect]
     Active Substance: INSULIN GLARGINE
     Route: 051
     Dates: start: 20160627
  2. SOLOSTAR [Suspect]
     Active Substance: DEVICE
     Dates: start: 20160627

REACTIONS (2)
  - Injection site bruising [Unknown]
  - Injection site pain [Unknown]
